FAERS Safety Report 4614255-1 (Version None)
Quarter: 2005Q1

REPORT INFORMATION
  Report Type: 
  Country: None (occurrence: None)
  Receive Date: 20050315
  Receipt Date: 20050309
  Transmission Date: 20050727
  Serious: Yes (Hospitalization)
  Sender: FDA-Public Use
  Company Number: 2005042158

PATIENT
  Age: 50 Year
  Sex: Male
  Weight: 80 kg

DRUGS (4)
  1. LIPITOR [Suspect]
     Indication: ILL-DEFINED DISORDER
     Dates: end: 20040927
  2. PERINDOPRIL (PERINDOPRIL) [Suspect]
     Indication: ILL-DEFINED DISORDER
     Dates: start: 20040819
  3. EZETIMIBE (EZETIMIBE) [Suspect]
     Indication: ILL-DEFINED DISORDER
     Dates: start: 20040819, end: 20040930
  4. FUROSEMIDE [Suspect]
     Indication: ILL-DEFINED DISORDER

REACTIONS (6)
  - ANAEMIA [None]
  - HEPATIC ENZYME INCREASED [None]
  - HEPATITIS ACUTE [None]
  - LOW CARDIAC OUTPUT SYNDROME [None]
  - PERIPHERAL ISCHAEMIA [None]
  - RENAL FAILURE [None]
